FAERS Safety Report 12697702 (Version 3)
Quarter: 2017Q2

REPORT INFORMATION
  Report Type: Report from Study
  Country: US (occurrence: US)
  Receive Date: 20160830
  Receipt Date: 20170627
  Transmission Date: 20170830
  Serious: No
  Sender: FDA-Public Use
  Company Number: PHEH2016US021851

PATIENT
  Sex: Female

DRUGS (1)
  1. GILENYA [Suspect]
     Active Substance: FINGOLIMOD HYDROCHLORIDE
     Indication: MULTIPLE SCLEROSIS
     Dosage: 0.5 MG, QD
     Route: 048

REACTIONS (7)
  - Confusional state [Unknown]
  - Anxiety [Unknown]
  - Feeling abnormal [Unknown]
  - Nightmare [Unknown]
  - Depressed mood [Unknown]
  - Dizziness [Unknown]
  - Stress [Unknown]
